FAERS Safety Report 4325549-1 (Version None)
Quarter: 2004Q1

REPORT INFORMATION
  Report Type: 
  Country: None (occurrence: None)
  Receive Date: 20040329
  Receipt Date: 20040317
  Transmission Date: 20041129
  Serious: Yes (Hospitalization)
  Sender: FDA-Public Use
  Company Number: FR-BRISTOL-MYERS SQUIBB COMPANY-12539854

PATIENT
  Age: 54 Year
  Sex: Male

DRUGS (6)
  1. GLUCOPHAGE [Suspect]
     Route: 048
     Dates: start: 20000218, end: 20000224
  2. DAONIL [Suspect]
     Indication: DIABETES MELLITUS
     Route: 048
     Dates: start: 20000203, end: 20000224
  3. BI-PROFENID [Suspect]
     Route: 048
     Dates: start: 20000208, end: 20000216
  4. GLUCOR [Suspect]
     Route: 048
     Dates: start: 20000205, end: 20000217
  5. DIANTALVIC [Suspect]
     Indication: CERVICAL ROOT PAIN
     Dates: end: 20000216
  6. RIVOTRIL [Suspect]
     Indication: CERVICAL ROOT PAIN
     Dates: end: 20040216

REACTIONS (10)
  - CERVICAL ROOT PAIN [None]
  - CYTOLYTIC HEPATITIS [None]
  - DYSPNOEA EXERTIONAL [None]
  - HEPATIC STEATOSIS [None]
  - HEPATITIS [None]
  - HEPATOMEGALY [None]
  - HYPERCHOLESTEROLAEMIA [None]
  - HYPERGLYCAEMIA [None]
  - HYPERTRIGLYCERIDAEMIA [None]
  - POLLAKIURIA [None]
